FAERS Safety Report 16110556 (Version 1)
Quarter: 2019Q1

REPORT INFORMATION
  Report Type: Spontaneous
  Country: CN (occurrence: CN)
  Receive Date: 20190325
  Receipt Date: 20190325
  Transmission Date: 20190418
  Serious: Yes (Other)
  Sender: FDA-Public Use
  Company Number: CN-IGSA-SR10008027

PATIENT
  Age: 55 Year
  Sex: Male

DRUGS (3)
  1. GLUCOSE [Concomitant]
     Active Substance: DEXTROSE
     Dosage: 100 ML, SINGLE
  2. HUMAN ALBUMIN GRIFOLS 20% 50 ML [Suspect]
     Active Substance: ALBUMIN HUMAN
     Indication: UPPER GASTROINTESTINAL HAEMORRHAGE
  3. HUMAN ALBUMIN GRIFOLS 20% 50 ML [Suspect]
     Active Substance: ALBUMIN HUMAN
     Indication: HEPATIC CIRRHOSIS
     Dosage: 20 G, SINGLE
     Route: 042
     Dates: start: 20190203

REACTIONS (7)
  - Body temperature increased [Recovered/Resolved]
  - Oxygen saturation decreased [Recovered/Resolved]
  - Chills [Recovered/Resolved]
  - Pallor [Recovered/Resolved]
  - Chest discomfort [Recovered/Resolved]
  - Tachypnoea [Recovered/Resolved]
  - Heart rate increased [Recovered/Resolved]

NARRATIVE: CASE EVENT DATE: 20190203
